FAERS Safety Report 8762449 (Version 2)
Quarter: 2012Q4

REPORT INFORMATION
  Report Type: 
  Country: US (occurrence: US)
  Receive Date: 20120830
  Receipt Date: 20121106
  Transmission Date: 20130627
  Serious: No
  Sender: FDA-Public Use
  Company Number: US-PFIZER INC-2012211648

PATIENT
  Age: 54 Year
  Sex: Female

DRUGS (1)
  1. PRISTIQ [Suspect]
     Dosage: 50 mg, UNK
     Dates: start: 20121030, end: 20121030

REACTIONS (3)
  - Epistaxis [Unknown]
  - Dry mouth [Unknown]
  - Insomnia [Unknown]
